FAERS Safety Report 24462273 (Version 1)
Quarter: 2024Q4

REPORT INFORMATION
  Report Type: Spontaneous
  Country: TR (occurrence: TR)
  Receive Date: 20241018
  Receipt Date: 20241018
  Transmission Date: 20250115
  Serious: No
  Sender: ROCHE
  Company Number: TR-ROCHE-3579657

PATIENT

DRUGS (1)
  1. MABTHERA [Suspect]
     Active Substance: RITUXIMAB
     Indication: Non-Hodgkin^s lymphoma
     Dosage: 1000 MG MABTHERA WAS PREPARED IN 1000 ML ISOTONIC FOR ADMINISTRATION
     Route: 065

REACTIONS (1)
  - Tachycardia [Unknown]
